FAERS Safety Report 9238324 (Version 1)
Quarter: 2013Q2

REPORT INFORMATION
  Report Type: Not Available
  Country: CN (occurrence: CN)
  Receive Date: 20130418
  Receipt Date: 20130418
  Transmission Date: 20140414
  Serious: Yes (Hospitalization)
  Sender: FDA-Public Use
  Company Number: CN-ASTELLAS-2013JP005080

PATIENT
  Sex: Male

DRUGS (4)
  1. TACROLIMUS [Suspect]
     Indication: TRANSPLANT REJECTION
     Dosage: 6 MG, BID
     Route: 048
     Dates: start: 20110601, end: 20120822
  2. TACROLIMUS [Suspect]
     Dosage: UNK
     Route: 048
  3. PREDNISONE [Concomitant]
     Dosage: 5 MG, UID/QD
     Route: 065
  4. MYCOPHENOLATE MOFETIL [Concomitant]
     Dosage: 1.5 G, UID/QD
     Route: 065

REACTIONS (1)
  - Renal disorder [Recovering/Resolving]
